FAERS Safety Report 6847937 (Version 16)
Quarter: 2013Q1

REPORT INFORMATION
  Report Type: Spontaneous
  Country: US (occurrence: US)
  Receive Date: 20050415
  Receipt Date: 20130225
  Transmission Date: 20140127
  Serious: Yes (Hospitalization, Other)
  Sender: FDA-Public Use
  Company Number: US-PFIZER INC-2005056879

PATIENT
  Age: 77 Year
  Sex: Female
  Weight: 66.68 kg

DRUGS (8)
  1. LIPITOR [Suspect]
     Indication: BLOOD CHOLESTEROL INCREASED
     Dosage: 40 MG, 1X/DAY
     Route: 048
     Dates: start: 1998
  2. LIPITOR [Suspect]
     Dosage: UNK
     Dates: start: 2000
  3. ZOLOFT [Suspect]
     Dosage: UNK
  4. PROCRIT [Suspect]
     Indication: ANAEMIA
     Route: 065
  5. PLAVIX [Suspect]
     Indication: TRANSIENT ISCHAEMIC ATTACK
     Dosage: 75 MG, UNK
     Route: 048
     Dates: start: 2005
  6. COREG [Suspect]
     Dosage: UNK
     Dates: start: 200502, end: 2005
  7. HUMULIN 70/30 [Concomitant]
     Route: 065
  8. HYDROCHLOROTHIAZIDE/TRIAMTERENE [Concomitant]
     Dosage: UNK

REACTIONS (31)
  - Myocardial infarction [Unknown]
  - Myocardial infarction [Unknown]
  - Carotid artery occlusion [Unknown]
  - Transient ischaemic attack [Unknown]
  - Transient ischaemic attack [Unknown]
  - Cholecystectomy [Unknown]
  - Adrenal disorder [Unknown]
  - Retinal haemorrhage [Unknown]
  - Retinopathy [Unknown]
  - Deafness [Unknown]
  - Vascular graft [Unknown]
  - Renal disorder [Unknown]
  - Kidney infection [Unknown]
  - Bone marrow disorder [Unknown]
  - Intestinal mass [Recovering/Resolving]
  - Mitral valve incompetence [Unknown]
  - Arterial occlusive disease [Unknown]
  - Depression [Unknown]
  - Blindness [Unknown]
  - Suicidal behaviour [Unknown]
  - Fall [Unknown]
  - Anaemia [Unknown]
  - Constipation [Unknown]
  - Dyspnoea [Unknown]
  - Fatigue [Unknown]
  - Gait disturbance [Unknown]
  - Diarrhoea [Not Recovered/Not Resolved]
  - Blood glucose increased [Unknown]
  - Disturbance in attention [Unknown]
  - Feeling abnormal [Unknown]
  - Drug ineffective [Unknown]
